FAERS Safety Report 8494799-5 (Version None)
Quarter: 2012Q3

REPORT INFORMATION
  Report Type: 
  Country: None (occurrence: None)
  Receive Date: 20120709
  Receipt Date: 20120702
  Transmission Date: 20120928
  Serious: Yes (Hospitalization)
  Sender: FDA-Public Use
  Company Number: US-BAYER-2012-011772

PATIENT
  Age: 43 Year
  Sex: Female
  Weight: 83.9 kg

DRUGS (11)
  1. YASMIN [Suspect]
     Indication: PREMENSTRUAL SYNDROME
     Dosage: UNK
     Dates: start: 20081201
  2. DROSPIRENONE AND ETHINYL ESTRADIOL [Suspect]
     Indication: CONTRACEPTION
     Dosage: UNK
     Dates: start: 20070827, end: 20091005
  3. DROSPIRENONE AND ETHINYL ESTRADIOL [Suspect]
     Indication: PREMENSTRUAL SYNDROME
  4. YASMIN [Suspect]
     Indication: ACNE
  5. DROSPIRENONE AND ETHINYL ESTRADIOL [Suspect]
     Indication: ACNE
  6. YASMIN [Suspect]
     Indication: CONTRACEPTION
     Dosage: UNK
     Dates: start: 20070827, end: 20091005
  7. ASPIRIN [Concomitant]
     Dosage: 81 MG,
     Route: 048
  8. SAINT JOHN'S WORT [Concomitant]
     Route: 048
  9. YAZ [Suspect]
  10. GLUCOSAMINE [Concomitant]
     Dosage: UNK
     Route: 048
  11. DIFFERIN [Concomitant]
     Dosage: 0.1% CREAM, APPLY SMALL AMOUNT TO AFFECTED AREA ONCE A DAY.NOTED 09-APR-2009, 08-OCT-2009 [PER MR]
     Route: 061

REACTIONS (5)
  - ANHEDONIA [None]
  - DEEP VEIN THROMBOSIS [None]
  - INJURY [None]
  - ANXIETY [None]
  - PAIN [None]
